FAERS Safety Report 5162273-X (Version None)
Quarter: 2006Q4

REPORT INFORMATION
  Report Type: 
  Country: None (occurrence: None)
  Receive Date: 20060919
  Receipt Date: 20060615
  Transmission Date: 20070319
  Serious: No
  Sender: FDA-Public Use
  Company Number: 2006US001358

PATIENT
  Age: 71 Year
  Sex: Female

DRUGS (2)
  1. VESICARE [Suspect]
     Indication: URINARY INCONTINENCE
     Dosage: 5 MG, UID/QD, ORAL
     Route: 048
     Dates: start: 20060515
  2. BENAZEPRIL (BENAZEPRIL) [Concomitant]

REACTIONS (5)
  - DRY MOUTH [None]
  - MUSCLE SPASMS [None]
  - OEDEMA PERIPHERAL [None]
  - URINARY INCONTINENCE [None]
  - VISION BLURRED [None]
